FAERS Safety Report 18365859 (Version 1)
Quarter: 2020Q4

REPORT INFORMATION
  Report Type: Spontaneous
  Country: US (occurrence: US)
  Receive Date: 20201009
  Receipt Date: 20201009
  Transmission Date: 20210114
  Serious: Yes (Death)
  Sender: FDA-Public Use
  Company Number: None

PATIENT
  Age: 72 Year
  Sex: Female

DRUGS (13)
  1. ELIQUIS 5MG TAB [Concomitant]
  2. PLAVIX 75MG TAB [Concomitant]
  3. POTASSIUM 10MEQ ER TAB [Concomitant]
  4. SOTALOL 80MG TAB [Concomitant]
  5. DILTIAZEM 120MG XT CAP [Concomitant]
  6. ATORVASTATIN 80MG TAB [Concomitant]
  7. GLIMEPIRIDE 2MG TAB [Concomitant]
  8. SUCRALFATE 1GR TAB [Concomitant]
  9. HYDROCODONE/APAP 5/325MG TAB [Concomitant]
  10. REPATHA [Suspect]
     Active Substance: EVOLOCUMAB
     Indication: ARTERIOSCLEROSIS
     Dosage: ?          OTHER FREQUENCY:EVERY 2 WEEKS;?
     Route: 058
     Dates: start: 20200301, end: 20200801
  11. REPATHA [Suspect]
     Active Substance: EVOLOCUMAB
     Indication: HYPERLIPIDAEMIA
     Dosage: ?          OTHER FREQUENCY:EVERY 2 WEEKS;?
     Route: 058
     Dates: start: 20200301, end: 20200801
  12. TOUJEO [Concomitant]
     Active Substance: INSULIN GLARGINE
  13. GABAPENTIN 100MG CAP [Concomitant]
     Active Substance: GABAPENTIN

REACTIONS (1)
  - Death [None]

NARRATIVE: CASE EVENT DATE: 20200801
